FAERS Safety Report 10181473 (Version 1)
Quarter: 2014Q2

REPORT INFORMATION
  Report Type: Spontaneous
  Country: GB (occurrence: GB)
  Receive Date: 20140519
  Receipt Date: 20140519
  Transmission Date: 20141212
  Serious: Yes (Other)
  Sender: FDA-Public Use
  Company Number: GB-MERCK-1405GBR007835

PATIENT
  Sex: Male

DRUGS (1)
  1. PROPECIA 1MG FILM-COATED TABLET [Suspect]
     Dosage: 1 MG, UNK

REACTIONS (9)
  - Suicide attempt [Unknown]
  - Erectile dysfunction [Unknown]
  - Sexual dysfunction [Unknown]
  - Penis disorder [Unknown]
  - Genital hypoaesthesia [Unknown]
  - Genital rash [Unknown]
  - Insomnia [Unknown]
  - Skin atrophy [Unknown]
  - Suicidal ideation [Unknown]
